FAERS Safety Report 8462640-2 (Version None)
Quarter: 2012Q2

REPORT INFORMATION
  Report Type: 
  Country: None (occurrence: None)
  Receive Date: 20120619
  Receipt Date: 20120619
  Transmission Date: 20120825
  Serious: Yes (Other)
  Sender: FDA-Public Use
  Company Number: None

PATIENT
  Age: 49 Year
  Sex: Female
  Weight: 65.7716 kg

DRUGS (1)
  1. ZANAFLEX [Suspect]
     Indication: FIBROMYALGIA
     Dosage: 4 MG, AT BEDTIME, PO
     Route: 048
     Dates: start: 20120523, end: 20120605

REACTIONS (5)
  - INSOMNIA [None]
  - PALPITATIONS [None]
  - BRADYCARDIA [None]
  - SWELLING [None]
  - GENERALISED OEDEMA [None]
